FAERS Safety Report 7271705-2 (Version None)
Quarter: 2011Q1

REPORT INFORMATION
  Report Type: 
  Country: None (occurrence: None)
  Receive Date: 20110203
  Receipt Date: 20101227
  Transmission Date: 20110831
  Serious: Yes (Hospitalization)
  Sender: FDA-Public Use
  Company Number: JP-PFIZER INC-2011023378

PATIENT

DRUGS (2)
  1. MIGLITOL [Suspect]
  2. AMARYL [Concomitant]

REACTIONS (1)
  - PNEUMATOSIS INTESTINALIS [None]
